FAERS Safety Report 6411589-5 (Version None)
Quarter: 2009Q4

REPORT INFORMATION
  Report Type: 
  Country: None (occurrence: None)
  Receive Date: 20091023
  Receipt Date: 20091015
  Transmission Date: 20100525
  Serious: Yes (Other)
  Sender: FDA-Public Use
  Company Number: US-JNJFOC-20091005748

PATIENT
  Sex: Female
  Weight: 101.61 kg

DRUGS (2)
  1. DURAGESIC-100 [Suspect]
     Indication: BACK PAIN
     Route: 062
  2. LORCET-HD [Concomitant]
     Indication: PAIN
     Route: 048

REACTIONS (4)
  - CONVULSION [None]
  - DRUG SCREEN POSITIVE [None]
  - INCORRECT DRUG ADMINISTRATION DURATION [None]
  - THERAPY CESSATION [None]
